FAERS Safety Report 5913955-0 (Version None)
Quarter: 2008Q4

REPORT INFORMATION
  Report Type: 
  Country: None (occurrence: None)
  Receive Date: 20081009
  Receipt Date: 20081006
  Transmission Date: 20090506
  Serious: Yes (Life-Threatening, Hospitalization)
  Sender: FDA-Public Use
  Company Number: GB-MERCK-0810GBR00035

PATIENT
  Age: 60 Year
  Sex: Male

DRUGS (3)
  1. ZOCOR [Suspect]
     Indication: PROPHYLAXIS
     Route: 048
     Dates: start: 20080219, end: 20080901
  2. LEVOTHYROXINE SODIUM [Concomitant]
     Route: 065
  3. METFORMIN [Concomitant]
     Route: 065

REACTIONS (6)
  - ABDOMINAL PAIN [None]
  - ACUTE HEPATIC FAILURE [None]
  - DUODENAL ULCER PERFORATION [None]
  - HEPATITIS [None]
  - JAUNDICE [None]
  - LIVER FUNCTION TEST ABNORMAL [None]
